FAERS Safety Report 24219002 (Version 2)
Quarter: 2024Q3

REPORT INFORMATION
  Report Type: Spontaneous
  Country: BR (occurrence: BR)
  Receive Date: 20240816
  Receipt Date: 20240904
  Transmission Date: 20241016
  Serious: No
  Sender: BOEHRINGER INGELHEIM
  Company Number: BR-BoehringerIngelheim-2024-BI-041921

PATIENT
  Age: 65 Year
  Sex: Female

DRUGS (6)
  1. SPIRIVA RESPIMAT [Suspect]
     Active Substance: TIOTROPIUM BROMIDE
     Indication: Emphysema
     Dosage: 2 PUFFS A DAY, 1 PUFF IN THE MORNING AND ANOTHER IN THE AFTERNOON.
     Route: 055
     Dates: start: 2023, end: 20240722
  2. SPIRIVA RESPIMAT [Suspect]
     Active Substance: TIOTROPIUM BROMIDE
     Dosage: 2 CONSECUTIVE PUFFS ONCE A DAY.
     Dates: start: 2024
  3. CHLOROQUINE [Concomitant]
     Active Substance: CHLOROQUINE
     Indication: Arthritis
     Dosage: HALF A TABLET A DAY.
     Route: 048
  4. CHLOROQUINE [Concomitant]
     Active Substance: CHLOROQUINE
     Indication: Osteoarthritis
  5. PREDNISONE [Concomitant]
     Active Substance: PREDNISONE
     Indication: Drug therapy
     Dosage: HALF A TABLET A DAY.
     Route: 048
  6. LOSARTAN [Concomitant]
     Active Substance: LOSARTAN\LOSARTAN POTASSIUM
     Indication: Hypertension
     Dosage: 1 TABLET A DAY.
     Route: 048

REACTIONS (2)
  - Incorrect dose administered [Recovered/Resolved]
  - Fatigue [Recovered/Resolved]

NARRATIVE: CASE EVENT DATE: 20230101
